FAERS Safety Report 16839413 (Version 2)
Quarter: 2019Q3

REPORT INFORMATION
  Report Type: Spontaneous
  Country: US (occurrence: US)
  Receive Date: 20190923
  Receipt Date: 20190925
  Transmission Date: 20191005
  Serious: Yes (Other)
  Sender: FDA-Public Use
  Company Number: US-BAYER-2019-171203

PATIENT
  Age: 45 Year
  Sex: Male

DRUGS (1)
  1. MOXIFLOXACIN ORAL [Suspect]
     Active Substance: MOXIFLOXACIN
     Indication: TUBERCULOSIS LIVER
     Dosage: UNK

REACTIONS (4)
  - Palate injury [None]
  - Off label use [None]
  - Histoplasmosis [None]
  - Product use in unapproved indication [None]
